FAERS Safety Report 25457215 (Version 2)
Quarter: 2025Q4

REPORT INFORMATION
  Report Type: Spontaneous
  Country: US (occurrence: US)
  Receive Date: 20250619
  Receipt Date: 20251111
  Transmission Date: 20260118
  Serious: Yes (Hospitalization, Other)
  Sender: ELI LILLY AND COMPANY
  Company Number: US-ELI_LILLY_AND_COMPANY-US202506015476

PATIENT
  Age: 47 Year
  Sex: Female

DRUGS (16)
  1. TRULICITY [Suspect]
     Active Substance: DULAGLUTIDE
     Indication: Type 2 diabetes mellitus
     Dosage: 0.75 MG, WEEKLY (1/W)
     Route: 065
     Dates: start: 20180410, end: 20190604
  2. JARDIANCE [Concomitant]
     Active Substance: EMPAGLIFLOZIN
     Indication: Type 2 diabetes mellitus
     Dosage: UNK
     Dates: start: 20160101, end: 20190101
  3. NOVOLOG [Concomitant]
     Active Substance: INSULIN ASPART
     Indication: Type 2 diabetes mellitus
     Dosage: UNK
     Dates: start: 20220101
  4. ROSUVASTATIN [Concomitant]
     Active Substance: ROSUVASTATIN
     Indication: Blood cholesterol increased
  5. ONDANSETRON [Concomitant]
     Active Substance: ONDANSETRON
     Indication: Impaired gastric emptying
     Dosage: UNK
     Dates: start: 20210401
  6. ONDANSETRON [Concomitant]
     Active Substance: ONDANSETRON
     Indication: Nausea
  7. ONDANSETRON [Concomitant]
     Active Substance: ONDANSETRON
     Indication: Vomiting
  8. ONDANSETRON [Concomitant]
     Active Substance: ONDANSETRON
     Indication: Constipation
  9. ONDANSETRON [Concomitant]
     Active Substance: ONDANSETRON
     Indication: Abdominal pain
  10. ONDANSETRON [Concomitant]
     Active Substance: ONDANSETRON
     Indication: Dehydration
  11. SUCRALFATE [Concomitant]
     Active Substance: SUCRALFATE
     Indication: Impaired gastric emptying
     Dosage: UNK
     Dates: start: 20210401
  12. SUCRALFATE [Concomitant]
     Active Substance: SUCRALFATE
     Indication: Nausea
  13. SUCRALFATE [Concomitant]
     Active Substance: SUCRALFATE
     Indication: Vomiting
  14. SUCRALFATE [Concomitant]
     Active Substance: SUCRALFATE
     Indication: Constipation
  15. SUCRALFATE [Concomitant]
     Active Substance: SUCRALFATE
     Indication: Abdominal pain
  16. SUCRALFATE [Concomitant]
     Active Substance: SUCRALFATE
     Indication: Dehydration

REACTIONS (4)
  - Impaired gastric emptying [Recovered/Resolved]
  - Abdominal pain [Unknown]
  - Depression [Unknown]
  - Anxiety [Unknown]

NARRATIVE: CASE EVENT DATE: 20210420
